FAERS Safety Report 13097619 (Version 1)
Quarter: 2017Q1

REPORT INFORMATION
  Report Type: Spontaneous
  Country: US (occurrence: US)
  Receive Date: 20170109
  Receipt Date: 20170109
  Transmission Date: 20170428
  Serious: Yes (Death)
  Sender: FDA-Public Use
  Company Number: US-MEDA-2017010004

PATIENT
  Age: 44 Year
  Sex: Female

DRUGS (7)
  1. CARISOPRODOL. [Suspect]
     Active Substance: CARISOPRODOL
  2. ACETAMINOPHEN W/OXYCODONE [Suspect]
     Active Substance: ACETAMINOPHEN\OXYCODONE HYDROCHLORIDE
  3. FENTANYL. [Suspect]
     Active Substance: FENTANYL
  4. TOPIRAMATE. [Suspect]
     Active Substance: TOPIRAMATE
  5. BUPROPION (EXTENDED RELEASE) [Suspect]
     Active Substance: BUPROPION
  6. DIAZEPAM. [Suspect]
     Active Substance: DIAZEPAM
  7. CETIRIZINE [Suspect]
     Active Substance: CETIRIZINE HYDROCHLORIDE

REACTIONS (1)
  - Completed suicide [Fatal]

NARRATIVE: CASE EVENT DATE: 2015
